FAERS Safety Report 8017563-X (Version None)
Quarter: 2011Q4

REPORT INFORMATION
  Report Type: 
  Country: None (occurrence: None)
  Receive Date: 20111229
  Receipt Date: 20111229
  Transmission Date: 20120403
  Serious: Yes (Hospitalization)
  Sender: FDA-Public Use
  Company Number: None

PATIENT
  Age: 91 Year
  Sex: Female
  Weight: 82 kg

DRUGS (12)
  1. CELEBREX [Suspect]
     Dosage: CHRONIC
  2. ZOCOR [Concomitant]
  3. LEVEMIR [Concomitant]
  4. CELEBREX [Concomitant]
  5. PLAVIX [Suspect]
     Indication: CORONARY ARTERY DISEASE
     Dosage: 75MG DAILY PO CHRONIC
     Route: 048
  6. COLACE [Concomitant]
  7. ASPIRIN [Suspect]
     Indication: CORONARY ARTERY DISEASE
     Dosage: 81 MG DAILY PO CHRONIC
     Route: 048
  8. FUROSEMIDE [Concomitant]
  9. ALTACE [Concomitant]
  10. AMARYL [Concomitant]
  11. POTASSIUM CHLORIDE [Concomitant]
  12. CALCIUM +D [Concomitant]

REACTIONS (5)
  - HAEMORRHOIDS [None]
  - DIVERTICULUM [None]
  - GASTRITIS EROSIVE [None]
  - GASTRIC ULCER [None]
  - RECTAL HAEMORRHAGE [None]
